FAERS Safety Report 13190673 (Version 1)
Quarter: 2017Q1

REPORT INFORMATION
  Report Type: Spontaneous
  Country: US (occurrence: US)
  Receive Date: 20170206
  Receipt Date: 20170206
  Transmission Date: 20170428
  Serious: No
  Sender: FDA-Public Use
  Company Number: US-ACTELION-A-NJ2014-94241

PATIENT
  Age: 76 Year
  Sex: Male

DRUGS (7)
  1. VALCHLOR [Suspect]
     Active Substance: MECHLORETHAMINE
     Indication: MYCOSIS FUNGOIDES
     Dosage: UNK
     Route: 061
  2. LEVOTHYROXINE. [Concomitant]
     Active Substance: LEVOTHYROXINE
     Dosage: 75 MCG TAB
  3. TRIAMCINOLONE [Concomitant]
     Active Substance: TRIAMCINOLONE
     Dosage: 0.1% CREAM
  4. CLOBETASOL 0.05% [Concomitant]
     Active Substance: CLOBETASOL
     Dosage: CREAM
  5. LOVAZA [Concomitant]
     Active Substance: OMEGA-3-ACID ETHYL ESTERS
     Dosage: 1 GM CAPS
  6. TARGRETIN [Concomitant]
     Active Substance: BEXAROTENE
     Dosage: 75 MG
     Route: 065
     Dates: start: 20151008, end: 20160609
  7. INTRON A [Concomitant]
     Active Substance: INTERFERON ALFA-2B
     Dosage: 6 MILLION U/ML

REACTIONS (2)
  - Application site pain [Unknown]
  - Application site pruritus [Not Recovered/Not Resolved]
